FAERS Safety Report 25348690 (Version 5)
Quarter: 2025Q3

REPORT INFORMATION
  Report Type: Spontaneous
  Country: US (occurrence: US)
  Receive Date: 20250522
  Receipt Date: 20250708
  Transmission Date: 20251020
  Serious: No
  Sender: PFIZER
  Company Number: US-PFIZER INC-202500104031

PATIENT
  Age: 41 Year
  Sex: Female
  Weight: 68.49 kg

DRUGS (2)
  1. SOMATROPIN [Suspect]
     Active Substance: SOMATROPIN
  2. SOMATROPIN [Suspect]
     Active Substance: SOMATROPIN

REACTIONS (6)
  - Hypoaesthesia [Unknown]
  - Carpal tunnel syndrome [Unknown]
  - Paraesthesia [Unknown]
  - Product physical consistency issue [Unknown]
  - Product reconstitution quality issue [Unknown]
  - Drug dose omission by device [Unknown]

NARRATIVE: CASE EVENT DATE: 20250518
